FAERS Safety Report 18301539 (Version 1)
Quarter: 2020Q3

REPORT INFORMATION
  Report Type: Spontaneous
  Country: US (occurrence: US)
  Receive Date: 20200923
  Receipt Date: 20200923
  Transmission Date: 20201103
  Serious: No
  Sender: FDA-Public Use
  Company Number: US-RECKITT BENCKISER HEALTHCARE INT LIMITED-RB-86380-2020

PATIENT
  Age: 68 Year
  Sex: Male

DRUGS (1)
  1. MUCINEX MAXIMUM STRENGTH [Suspect]
     Active Substance: GUAIFENESIN
     Indication: HYPERSENSITIVITY
     Dosage: OFF AND ON FOR YEARS
     Route: 065
     Dates: start: 20200423

REACTIONS (2)
  - Product use in unapproved indication [Unknown]
  - Product package associated injury [Unknown]

NARRATIVE: CASE EVENT DATE: 20200429
